FAERS Safety Report 13502113 (Version 3)
Quarter: 2017Q2

REPORT INFORMATION
  Report Type: Report from Study
  Country: ES (occurrence: ES)
  Receive Date: 20170502
  Receipt Date: 20170519
  Transmission Date: 20170830
  Serious: Yes (Death, Hospitalization)
  Sender: FDA-Public Use
  Company Number: ES-ROCHE-1926848

PATIENT
  Age: 71 Year
  Sex: Male
  Weight: 80 kg

DRUGS (9)
  1. TOCILIZUMAB [Suspect]
     Active Substance: TOCILIZUMAB
     Route: 058
     Dates: start: 20151202, end: 20160311
  2. OMEPRAZOLE. [Concomitant]
     Active Substance: OMEPRAZOLE
  3. DEPAKINE [Concomitant]
     Active Substance: VALPROATE SODIUM
  4. FOLIC ACID. [Concomitant]
     Active Substance: FOLIC ACID
  5. TOCILIZUMAB [Suspect]
     Active Substance: TOCILIZUMAB
     Indication: TEMPORAL ARTERITIS
     Route: 058
     Dates: start: 20140410, end: 20151006
  6. TOCILIZUMAB [Suspect]
     Active Substance: TOCILIZUMAB
     Dosage: THERAPY INTERRUPTED
     Route: 058
     Dates: start: 20161103
  7. LEVETIRACETAM. [Concomitant]
     Active Substance: LEVETIRACETAM
  8. PREDNISONE. [Concomitant]
     Active Substance: PREDNISONE
  9. FUROSEMIDE. [Concomitant]
     Active Substance: FUROSEMIDE

REACTIONS (1)
  - Plasmablastic lymphoma [Fatal]

NARRATIVE: CASE EVENT DATE: 20170319
